FAERS Safety Report 5341750-2 (Version None)
Quarter: 2007Q2

REPORT INFORMATION
  Report Type: 
  Country: None (occurrence: None)
  Receive Date: 20070601
  Receipt Date: 20070522
  Transmission Date: 20071010
  Serious: Yes (Other)
  Sender: FDA-Public Use
  Company Number: DE-JNJFOC-20070201515

PATIENT
  Age: 7 Decade
  Sex: Female

DRUGS (4)
  1. INFLIXIMAB [Suspect]
     Route: 042
  2. INFLIXIMAB [Suspect]
     Indication: RHEUMATOID ARTHRITIS
     Dosage: 10TH INFUSION
     Route: 042
  3. MTX [Concomitant]
  4. PREDNISOLONE [Concomitant]

REACTIONS (1)
  - BREAST CANCER [None]
